FAERS Safety Report 9118229 (Version 1)
Quarter: 2013Q1

REPORT INFORMATION
  Report Type: Spontaneous
  Country: US (occurrence: US)
  Receive Date: 20130128
  Receipt Date: 20130128
  Transmission Date: 20140127
  Serious: No
  Sender: FDA-Public Use
  Company Number: US-PFIZER INC-2013032555

PATIENT
  Age: 80 Year
  Sex: Female

DRUGS (2)
  1. SERTRALINE HCL [Suspect]
     Dosage: 100 MG, 2X/DAY
  2. CELEBREX [Concomitant]

REACTIONS (1)
  - Blood sodium decreased [Unknown]
